FAERS Safety Report 16847969 (Version 1)
Quarter: 2019Q3

REPORT INFORMATION
  Report Type: Spontaneous
  Country: CA (occurrence: CA)
  Receive Date: 20190924
  Receipt Date: 20190924
  Transmission Date: 20191005
  Serious: Yes (Other)
  Sender: FDA-Public Use
  Company Number: CA-AUROBINDO-AUR-APL-2019-062329

PATIENT
  Sex: Female

DRUGS (3)
  1. OZURDEX [Suspect]
     Active Substance: DEXAMETHASONE
     Indication: PRODUCT USED FOR UNKNOWN INDICATION
     Dosage: 0.7 MILLIGRAM, ONCE A DAY
     Route: 031
  2. SIMVASTATIN. [Suspect]
     Active Substance: SIMVASTATIN
     Indication: RETINAL VEIN OCCLUSION
     Dosage: UNK
     Route: 065
  3. SIMVASTATIN. [Suspect]
     Active Substance: SIMVASTATIN
     Indication: MALIGNANT GLAUCOMA
     Dosage: UNK
     Route: 065

REACTIONS (4)
  - Vitreous haemorrhage [Unknown]
  - Hyphaema [Unknown]
  - Glaucoma [Unknown]
  - Intraocular pressure increased [Unknown]
